FAERS Safety Report 19256171 (Version 2)
Quarter: 2021Q2

REPORT INFORMATION
  Report Type: Report from Study
  Country: ES (occurrence: ES)
  Receive Date: 20210513
  Receipt Date: 20210601
  Transmission Date: 20210717
  Serious: Yes (Other)
  Sender: FDA-Public Use
  Company Number: ES-EMD SERONO-9237454

PATIENT
  Sex: Female
  Weight: 3.15 kg

DRUGS (1)
  1. REBIF [Suspect]
     Active Substance: INTERFERON BETA-1A
     Indication: PRODUCT USED FOR UNKNOWN INDICATION

REACTIONS (3)
  - Foetal exposure during pregnancy [Recovered/Resolved]
  - Bradycardia foetal [Unknown]
  - Ophthalmia neonatorum [Unknown]

NARRATIVE: CASE EVENT DATE: 20210414
